FAERS Safety Report 7783310-X (Version None)
Quarter: 2011Q3

REPORT INFORMATION
  Report Type: 
  Country: None (occurrence: None)
  Receive Date: 20110927
  Receipt Date: 20110927
  Transmission Date: 20111222
  Serious: No
  Sender: FDA-Public Use
  Company Number: None

PATIENT
  Age: 55 Year
  Sex: Male
  Weight: 102.1 kg

DRUGS (2)
  1. LISINOPRIL [Suspect]
     Dosage: 5 MG EVERY DAY PO
     Route: 048
     Dates: end: 20110707
  2. SPIRONOLACTONE [Suspect]
     Dosage: 25 MG EVERY DAY PO
     Route: 048
     Dates: end: 20110707

REACTIONS (1)
  - HYPERKALAEMIA [None]
